FAERS Safety Report 7475038-0 (Version None)
Quarter: 2011Q2

REPORT INFORMATION
  Report Type: 
  Country: None (occurrence: None)
  Receive Date: 20110512
  Receipt Date: 20110502
  Transmission Date: 20111010
  Serious: Yes (Hospitalization)
  Sender: FDA-Public Use
  Company Number: US-US-EMD SERONO, INC.-7057649

PATIENT
  Sex: Female
  Weight: 130 kg

DRUGS (9)
  1. LISINOPRIL [Concomitant]
  2. MELOXICAM [Concomitant]
  3. SAVELLA [Concomitant]
  4. VITAMIN TAB [Concomitant]
  5. VESICARE [Concomitant]
  6. METFORMIN HCL [Concomitant]
  7. ASPIRIN [Concomitant]
  8. REBIF [Suspect]
     Indication: MULTIPLE SCLEROSIS
     Route: 058
     Dates: start: 20090916
  9. NORVASC [Concomitant]

REACTIONS (6)
  - CONSTIPATION [None]
  - NECK PAIN [None]
  - ANAEMIA [None]
  - INFLUENZA [None]
  - INJECTION SITE PAIN [None]
  - INJECTION SITE ERYTHEMA [None]
